FAERS Safety Report 9715731 (Version 3)
Quarter: 2014Q1

REPORT INFORMATION
  Report Type: Spontaneous
  Country: US (occurrence: US)
  Receive Date: 20131127
  Receipt Date: 20140130
  Transmission Date: 20141002
  Serious: Yes (Life-Threatening, Hospitalization, Other)
  Sender: FDA-Public Use
  Company Number: US-JNJFOC-20131114009

PATIENT
  Age: 49 Year
  Sex: Male
  Weight: 74.84 kg

DRUGS (8)
  1. REMICADE [Suspect]
     Indication: COLITIS ULCERATIVE
     Dosage: ALSO REPORTED AS 5 MG/KG
     Route: 042
  2. REMICADE [Suspect]
     Indication: COLITIS ULCERATIVE
     Route: 042
  3. TESTOSTERONE [Suspect]
     Indication: PRODUCT USED FOR UNKNOWN INDICATION
     Dosage: FOR THE PAST NINE WEEKS.
     Route: 030
  4. DICYCLOMINE [Concomitant]
     Indication: COLITIS
     Route: 048
  5. PANTOPRAZOLE [Concomitant]
     Dosage: ONCE AM.
     Route: 048
  6. LIALDA [Concomitant]
     Indication: COLITIS ULCERATIVE
     Dosage: 4 CAPS WITH MEALS.
     Route: 048
  7. VICODIN [Concomitant]
     Indication: PAIN
     Dosage: 5/500  EVERY SIX HOUR AS NEEDED.
     Route: 048
  8. FLU VACCINE [Concomitant]
     Route: 065
     Dates: start: 201309

REACTIONS (5)
  - Sinus disorder [Unknown]
  - Cerebral venous thrombosis [Recovered/Resolved with Sequelae]
  - Cerebrovascular accident [Recovered/Resolved with Sequelae]
  - Convulsion [Recovering/Resolving]
  - Contraindication to vaccination [Unknown]
